FAERS Safety Report 23493287 (Version 2)
Quarter: 2024Q1

REPORT INFORMATION
  Report Type: Spontaneous
  Country: US (occurrence: None)
  Receive Date: 20240207
  Receipt Date: 20240311
  Transmission Date: 20240410
  Serious: Yes (Life-Threatening)
  Sender: FDA-Public Use
  Company Number: US-ROCHE-3504322

PATIENT
  Sex: Female

DRUGS (23)
  1. XOLAIR [Suspect]
     Active Substance: OMALIZUMAB
     Indication: Asthma
     Dosage: 2 SYRINGES OF 150 MG AND 1 SYRINGE OF 75 MG
     Route: 058
  2. XOLAIR [Suspect]
     Active Substance: OMALIZUMAB
  3. XOLAIR [Suspect]
     Active Substance: OMALIZUMAB
  4. PREGABALIN [Concomitant]
     Active Substance: PREGABALIN
  5. ALBUTEROL [Concomitant]
     Active Substance: ALBUTEROL
  6. AMLODIPINE [Concomitant]
     Active Substance: AMLODIPINE BESYLATE
     Dosage: 8 TABS
  7. VITAMIN B12 [Concomitant]
     Active Substance: CYANOCOBALAMIN
     Dosage: 5000 MCG
  8. BREO ELLIPTA [Concomitant]
     Active Substance: FLUTICASONE FUROATE\VILANTEROL TRIFENATATE
     Dosage: 200-25 MC
  9. DULERA [Concomitant]
     Active Substance: FORMOTEROL FUMARATE DIHYDRATE\MOMETASONE FUROATE
     Dosage: AER 50-5 MCG/ACT
  10. DULOXETINE HYDROCHLORIDE [Concomitant]
     Active Substance: DULOXETINE HYDROCHLORIDE
  11. EPIPEN [Concomitant]
     Active Substance: EPINEPHRINE
     Dosage: 2-PAK SOA 0.3 MG/0
  12. FUROSEMIDE [Concomitant]
     Active Substance: FUROSEMIDE
  13. IRON [Concomitant]
     Active Substance: IRON
     Dosage: 325 65 MG
  14. LEVOTHYROXINE [Concomitant]
     Active Substance: LEVOTHYROXINE\LEVOTHYROXINE SODIUM
     Dosage: 50 MCG
  15. LIDOCAINE [Concomitant]
     Active Substance: LIDOCAINE
  16. LISINOPRIL [Concomitant]
     Active Substance: LISINOPRIL
  17. MONTELUKAST [Concomitant]
     Active Substance: MONTELUKAST SODIUM
  18. MUPIROCIN [Concomitant]
     Active Substance: MUPIROCIN
  19. PANTOPRAZOLE [Concomitant]
     Active Substance: PANTOPRAZOLE
  20. POTASSIUM [Concomitant]
     Active Substance: POTASSIUM
     Dosage: PAC 20 MEQ
  21. ROPINIROLE [Concomitant]
     Active Substance: ROPINIROLE
  22. SPIRIVA RESPIMAT [Concomitant]
     Active Substance: TIOTROPIUM BROMIDE
     Dosage: AER 2.5 MCG/A
  23. BENADRYL [Concomitant]
     Active Substance: DIPHENHYDRAMINE HYDROCHLORIDE

REACTIONS (1)
  - Anaphylactic reaction [Recovered/Resolved]

NARRATIVE: CASE EVENT DATE: 20240123
